FAERS Safety Report 23700697 (Version 1)
Quarter: 2024Q2

REPORT INFORMATION
  Report Type: Spontaneous
  Country: US (occurrence: US)
  Receive Date: 20240403
  Receipt Date: 20240403
  Transmission Date: 20240716
  Serious: No
  Sender: FDA-Public Use
  Company Number: US-OPELLA-2024OHG009582

PATIENT
  Sex: Male

DRUGS (1)
  1. XYZAL ALLERGY 24HR [Suspect]
     Active Substance: LEVOCETIRIZINE DIHYDROCHLORIDE
     Indication: Pruritus
     Dates: start: 202403

REACTIONS (2)
  - Drug effect less than expected [Unknown]
  - No adverse event [Unknown]

NARRATIVE: CASE EVENT DATE: 20240301
